FAERS Safety Report 15318699 (Version 1)
Quarter: 2018Q3

REPORT INFORMATION
  Report Type: Report from Study
  Country: US (occurrence: US)
  Receive Date: 20180826
  Receipt Date: 20180826
  Transmission Date: 20181010
  Serious: No
  Sender: FDA-Public Use
  Company Number: PHEH2018US034790

PATIENT
  Sex: Female
  Weight: 71.21 kg

DRUGS (1)
  1. COSENTYX [Suspect]
     Active Substance: SECUKINUMAB
     Indication: PSORIASIS
     Dosage: 300 MG, AT DAY 28 AND THEN EVERY 4 WEEKS
     Route: 058
     Dates: start: 201803

REACTIONS (1)
  - No adverse event [Unknown]
